FAERS Safety Report 9182301 (Version 1)
Quarter: 2013Q1

REPORT INFORMATION
  Report Type: Spontaneous
  Country: US (occurrence: US)
  Receive Date: 20130322
  Receipt Date: 20130322
  Transmission Date: 20140127
  Serious: Yes (Hospitalization, Other)
  Sender: FDA-Public Use
  Company Number: PHEH2013US006509

PATIENT
  Age: 81 None
  Sex: Female

DRUGS (6)
  1. RECLAST [Suspect]
     Dosage: UNK UKN, YEARLY
     Route: 042
  2. RECLAST [Suspect]
     Dosage: UNK UKN, YEARLY
     Route: 042
     Dates: start: 20130318
  3. AMLODIPINE [Concomitant]
     Indication: HYPERTENSION
     Dosage: 5 MG, DAILY
     Route: 048
  4. ALBUTEROL [Concomitant]
  5. XOPENEX [Concomitant]
     Dosage: 2 DF, Q6H (2 PUFFS OF 90 MG)
  6. AZITHROMYCIN [Concomitant]
     Dosage: 25 MG, UNK

REACTIONS (7)
  - Lung disorder [Not Recovered/Not Resolved]
  - Infection [Not Recovered/Not Resolved]
  - Weight fluctuation [Not Recovered/Not Resolved]
  - Fall [Not Recovered/Not Resolved]
  - Memory impairment [Not Recovered/Not Resolved]
  - Asthenia [Not Recovered/Not Resolved]
  - Local swelling [Not Recovered/Not Resolved]
